FAERS Safety Report 15749696 (Version 1)
Quarter: 2018Q4

REPORT INFORMATION
  Report Type: Spontaneous
  Country: US (occurrence: US)
  Receive Date: 20181205
  Receipt Date: 20181205
  Transmission Date: 20190205
  Serious: No
  Sender: FDA-Public Use
  Company Number: None

PATIENT
  Age: 54 Year
  Sex: Female

DRUGS (3)
  1. AFINITOR [Suspect]
     Active Substance: EVEROLIMUS
     Indication: BREAST CANCER FEMALE
     Route: 048
     Dates: start: 20181005, end: 20181204
  2. XGEVA [Concomitant]
     Active Substance: DENOSUMAB
  3. AROMASIN [Concomitant]
     Active Substance: EXEMESTANE

REACTIONS (1)
  - Rash [None]

NARRATIVE: CASE EVENT DATE: 20181203
